FAERS Safety Report 25136932 (Version 1)
Quarter: 2025Q1

REPORT INFORMATION
  Report Type: Spontaneous
  Country: FR (occurrence: FR)
  Receive Date: 20250328
  Receipt Date: 20250328
  Transmission Date: 20250408
  Serious: Yes (Hospitalization, Other)
  Sender: PURDUE
  Company Number: FR-PURDUE-USA-2025-0316177

PATIENT
  Age: 41 Year
  Sex: Male

DRUGS (1)
  1. SCOPOLAMINE [Suspect]
     Active Substance: SCOPOLAMINE
     Indication: Product used for unknown indication
     Route: 062

REACTIONS (7)
  - Colour vision tests abnormal [Unknown]
  - Disorganised speech [Unknown]
  - Vision blurred [Unknown]
  - Amnesia [Unknown]
  - Headache [Unknown]
  - Toxicity to various agents [Unknown]
  - Drug screen [Unknown]
